FAERS Safety Report 13062499 (Version 2)
Quarter: 2017Q1

REPORT INFORMATION
  Report Type: Spontaneous
  Country: RU (occurrence: RU)
  Receive Date: 20161226
  Receipt Date: 20170217
  Transmission Date: 20170428
  Serious: Yes (Life-Threatening, Hospitalization)
  Sender: FDA-Public Use
  Company Number: RU-ASTRAZENECA-2016SF35504

PATIENT
  Age: 48 Year
  Sex: Male
  Weight: 70 kg

DRUGS (10)
  1. BRITOMAR [Concomitant]
     Active Substance: TORSEMIDE
  2. ESPIRO [Concomitant]
  3. OMACOR [Concomitant]
     Active Substance: OMEGA-3-ACID ETHYL ESTERS
     Dosage: EPA/DHA=1.2/1 - 90%
  4. PRESTARIUM [Concomitant]
     Active Substance: PERINDOPRIL
  5. NOLPAZA [Concomitant]
     Active Substance: PANTOPRAZOLE SODIUM
  6. MONOCINQUE [Concomitant]
     Active Substance: ISOSORBIDE MONONITRATE
  7. BRILINTA [Suspect]
     Active Substance: TICAGRELOR
     Indication: MYOCARDIAL INFARCTION
     Route: 048
     Dates: start: 201608
  8. CARDIOMAGNYL [Concomitant]
     Active Substance: ASPIRIN\MAGNESIUM HYDROXIDE
  9. CONCOR [Concomitant]
     Active Substance: BISOPROLOL FUMARATE
  10. ATORIS [Concomitant]
     Active Substance: ATORVASTATIN CALCIUM

REACTIONS (5)
  - Weight increased [Recovered/Resolved]
  - Myocardial infarction [Unknown]
  - Concussion [Unknown]
  - Jaw cyst [Unknown]
  - Vascular stent occlusion [Not Recovered/Not Resolved]

NARRATIVE: CASE EVENT DATE: 201601
